FAERS Safety Report 9549611 (Version 2)
Quarter: 2013Q4

REPORT INFORMATION
  Report Type: Report from Study
  Country: CA (occurrence: CA)
  Receive Date: 20130924
  Receipt Date: 20131004
  Transmission Date: 20140711
  Serious: Yes (Other)
  Sender: FDA-Public Use
  Company Number: CA-TEVA-433889USA

PATIENT
  Age: 54 Year
  Sex: Female

DRUGS (6)
  1. COPAXONE [Suspect]
     Indication: MULTIPLE SCLEROSIS
     Route: 058
     Dates: start: 20130513, end: 20130918
  2. CALTRATE [Concomitant]
  3. VITAMIN C [Concomitant]
  4. VITAMIN D [Concomitant]
  5. VERAPAMIL [Concomitant]
  6. MICARDIS [Concomitant]

REACTIONS (4)
  - Cardiac arrest [Recovered/Resolved]
  - Incorrect route of drug administration [Recovered/Resolved]
  - Respiratory arrest [Recovered/Resolved]
  - Pulse absent [Recovered/Resolved]
